FAERS Safety Report 4471122-4 (Version None)
Quarter: 2004Q4

REPORT INFORMATION
  Report Type: 
  Country: None (occurrence: None)
  Receive Date: 20041008
  Receipt Date: 20041004
  Transmission Date: 20050328
  Serious: Yes (Other)
  Sender: FDA-Public Use
  Company Number: 002866

PATIENT
  Age: 76 Year
  Sex: Female

DRUGS (4)
  1. MEDROXYPROGESTERONE ACETATE [Suspect]
     Dosage: ORAL
     Route: 048
     Dates: start: 19940201, end: 19980501
  2. PROVERA [Suspect]
     Dosage: ORAL
     Route: 048
     Dates: start: 19940201, end: 19980501
  3. ESTRACE [Suspect]
     Dosage: ORAL
     Route: 048
     Dates: start: 19940201, end: 19980601
  4. MEDROXYPROGESTERONE ACETATE [Suspect]
     Dosage: ORAL
     Route: 048
     Dates: start: 19980601, end: 20000701

REACTIONS (2)
  - CEREBROVASCULAR ACCIDENT [None]
  - MYOCARDIAL INFARCTION [None]
